FAERS Safety Report 7272330-X (Version None)
Quarter: 2011Q1

REPORT INFORMATION
  Report Type: 
  Country: None (occurrence: None)
  Receive Date: 20110131
  Receipt Date: 20110131
  Transmission Date: 20110831
  Serious: Yes (Disabling)
  Sender: FDA-Public Use
  Company Number: None

PATIENT
  Age: 55 Year
  Sex: Female
  Weight: 100.5 kg

DRUGS (1)
  1. STRIDEX PADS MAX STRIDEX [Suspect]
     Dates: start: 20110108

REACTIONS (2)
  - APPLICATION SITE VESICLES [None]
  - APPLICATION SITE PAIN [None]
